FAERS Safety Report 6831427-6 (Version None)
Quarter: 2010Q2

REPORT INFORMATION
  Report Type: 
  Country: None (occurrence: None)
  Receive Date: 20100520
  Receipt Date: 20090929
  Transmission Date: 20101027
  Serious: Yes (Other)
  Sender: FDA-Public Use
  Company Number: 2009223486

PATIENT
  Age: 54 Year
  Sex: Female
  Weight: 91 kg

DRUGS (6)
  1. PROVERA [Suspect]
     Indication: HORMONE REPLACEMENT THERAPY
     Dosage: 2.5 MG, ORAL
     Route: 048
     Dates: start: 19860101, end: 19960101
  2. MEDROXYPROGESTERONE ACETATE [Suspect]
     Indication: HORMONE REPLACEMENT THERAPY
     Dosage: 2.5 MG, ORAL
     Route: 048
     Dates: start: 19860101, end: 19960101
  3. MEDROXYPROGESTERONE ACETATE [Suspect]
     Indication: HORMONE REPLACEMENT THERAPY
     Dosage: 2.5 MG
     Dates: start: 19860101, end: 19960101
  4. PREMARIN [Suspect]
     Indication: HORMONE REPLACEMENT THERAPY
     Dosage: 0.625 MG
     Dates: start: 19860101, end: 19960101
  5. PREMPRO [Suspect]
     Indication: HORMONE REPLACEMENT THERAPY
     Dosage: 0.625/2.5 MG
     Dates: start: 19960101, end: 19981001
  6. ANTI-ASTHMATICS [Concomitant]

REACTIONS (1)
  - BREAST CANCER FEMALE [None]
